FAERS Safety Report 8308104 (Version 2)
Quarter: 2013Q3

REPORT INFORMATION
  Report Type: Report from Study
  Country: FR (occurrence: FR)
  Receive Date: 20111222
  Receipt Date: 20130701
  Transmission Date: 20140515
  Serious: Yes (Life-Threatening)
  Sender: FDA-Public Use
  Company Number: FR-JNJFOC-20111208103

PATIENT
  Age: 14 Year
  Sex: Male
  Weight: 38.2 kg

DRUGS (8)
  1. REMICADE [Suspect]
     Indication: CROHN^S DISEASE
     Route: 042
     Dates: start: 20100301
  2. REMICADE [Suspect]
     Indication: CROHN^S DISEASE
     Route: 042
     Dates: start: 20111215
  3. REMICADE [Suspect]
     Indication: CROHN^S DISEASE
     Route: 042
     Dates: start: 20111118
  4. AZATHIOPRINE [Concomitant]
  5. IRON SUCROSE [Concomitant]
  6. MODULEN [Concomitant]
  7. OMEPRAZOLE [Concomitant]
  8. PREDNISONE [Concomitant]

REACTIONS (5)
  - Tachycardia [Recovered/Resolved]
  - Chest discomfort [Recovered/Resolved]
  - Anaphylactic reaction [Recovered/Resolved]
  - Throat irritation [Recovered/Resolved]
  - Infusion related reaction [Recovered/Resolved]
